FAERS Safety Report 5018892-4 (Version None)
Quarter: 2006Q2

REPORT INFORMATION
  Report Type: 
  Country: None (occurrence: None)
  Receive Date: 20060531
  Receipt Date: 20060518
  Transmission Date: 20061013
  Serious: Yes (Hospitalization)
  Sender: FDA-Public Use
  Company Number: 2006065543

PATIENT
  Age: 63 Year
  Sex: Female
  Weight: 69.4003 kg

DRUGS (6)
  1. ZYVOX [Suspect]
     Indication: ENDOCARDITIS STAPHYLOCOCCAL
     Dosage: 1200 MG (600 MG, 2 IN 1 D), INTRAVENOUS
     Route: 042
     Dates: start: 20060504
  2. ZANTAC [Concomitant]
  3. ATENOLOL [Concomitant]
  4. ATIVAN [Concomitant]
  5. GENTAMICIN SULFATE [Concomitant]
  6. VANCOMYCIN [Concomitant]

REACTIONS (4)
  - CATHETER RELATED COMPLICATION [None]
  - LABORATORY TEST ABNORMAL [None]
  - NAUSEA [None]
  - STOMACH DISCOMFORT [None]
